FAERS Safety Report 4867040-X (Version None)
Quarter: 2005Q4

REPORT INFORMATION
  Report Type: 
  Country: None (occurrence: None)
  Receive Date: 20051220
  Receipt Date: 20020118
  Transmission Date: 20060501
  Serious: Yes (Death, Hospitalization)
  Sender: FDA-Public Use
  Company Number: HQ7596607DEC1999

PATIENT
  Age: 67 Year
  Sex: Male

DRUGS (2)
  1. GEMTUZUMAB OZOGOMACIN [Suspect]
     Indication: ACUTE MYELOID LEUKAEMIA
     Dosage: 9 MG/M (2) INTRAVENOUS
     Route: 042
     Dates: start: 19991020, end: 19991020
  2. HYDROCORTISONE [Concomitant]

REACTIONS (18)
  - BLADDER DISORDER [None]
  - CANDIDA SEPSIS [None]
  - CARDIAC FAILURE [None]
  - CONFUSIONAL STATE [None]
  - CYSTITIS [None]
  - DISORIENTATION [None]
  - DYSPNOEA [None]
  - FLUID OVERLOAD [None]
  - HAEMATURIA [None]
  - HYPERGLYCAEMIA [None]
  - INFECTION [None]
  - PANCYTOPENIA [None]
  - PSYCHOTIC DISORDER [None]
  - RALES [None]
  - RESPIRATORY FAILURE [None]
  - SEDATION [None]
  - THROMBOSIS [None]
  - TRANSFUSION REACTION [None]
